FAERS Safety Report 13559939 (Version 1)
Quarter: 2017Q2

REPORT INFORMATION
  Report Type: Spontaneous
  Country: US (occurrence: US)
  Receive Date: 20170518
  Receipt Date: 20170518
  Transmission Date: 20170830
  Serious: No
  Sender: FDA-Public Use
  Company Number: US-DRREDDYS-USA/USA/16/0086015

PATIENT
  Age: 32 Year
  Sex: Female

DRUGS (2)
  1. ALUMINUM CHLORIDE [Concomitant]
     Active Substance: ALUMINUM CHLORIDE
     Indication: HYPERHIDROSIS
     Dosage: 20 PERCENT TOPICAL SOLUTION
     Route: 061
  2. GLYCOPYRROLATE. [Suspect]
     Active Substance: GLYCOPYRROLATE
     Indication: HYPERHIDROSIS
     Route: 048

REACTIONS (2)
  - Hyperhidrosis [Recovered/Resolved]
  - Product use in unapproved indication [Unknown]
